FAERS Safety Report 5225813-8 (Version None)
Quarter: 2007Q1

REPORT INFORMATION
  Report Type: 
  Country: None (occurrence: None)
  Receive Date: 20070201
  Receipt Date: 20070119
  Transmission Date: 20070707
  Serious: Yes (Death, Hospitalization, Other)
  Sender: FDA-Public Use
  Company Number: FR-BAYER-200610621BFR

PATIENT
  Age: 55 Year
  Sex: Male
  Weight: 91 kg

DRUGS (6)
  1. NEXAVAR [Suspect]
     Indication: METASTATIC RENAL CELL CARCINOMA
     Dosage: TOTAL DAILY DOSE: 800 MG  UNIT DOSE: 400 MG
     Route: 048
     Dates: start: 20060512
  2. OXYCONTIN [Concomitant]
     Indication: PAIN
     Dosage: UNIT DOSE: 30 MG
     Route: 048
     Dates: start: 20060525
  3. ZELITREX [Concomitant]
     Indication: HERPES VIRUS INFECTION
     Dosage: UNIT DOSE: 1000 MG
     Route: 048
     Dates: start: 20060531
  4. ASPEGIC 1000 [Concomitant]
     Indication: MUCOSAL INFLAMMATION
     Route: 002
     Dates: start: 20060529
  5. FORLAX [Concomitant]
     Indication: CONSTIPATION
     Route: 048
     Dates: start: 20060603
  6. FRAXIPARINE [Concomitant]
     Indication: PROPHYLAXIS
     Dosage: UNIT DOSE: 0.3 ML
     Route: 058
     Dates: start: 20060523

REACTIONS (3)
  - DEATH [None]
  - HYPERCALCAEMIA [None]
  - PULMONARY EMBOLISM [None]
